FAERS Safety Report 7314925-0 (Version None)
Quarter: 2011Q1

REPORT INFORMATION
  Report Type: 
  Country: None (occurrence: None)
  Receive Date: 20110225
  Receipt Date: 20100304
  Transmission Date: 20110831
  Serious: No
  Sender: FDA-Public Use
  Company Number: US-MYLANLABS-2010S1001975

PATIENT
  Age: 29 Year
  Sex: Female
  Weight: 68.04 kg

DRUGS (2)
  1. ORTHO TRI-CYCLEN [Concomitant]
  2. AMNESTEEM [Suspect]
     Indication: ACNE CYSTIC
     Route: 048
     Dates: start: 20091005, end: 20091226

REACTIONS (5)
  - FATIGUE [None]
  - HYPERSOMNIA [None]
  - ARTHRALGIA [None]
  - ASTHENIA [None]
  - MYALGIA [None]
